FAERS Safety Report 5894594-7 (Version None)
Quarter: 2008Q3

REPORT INFORMATION
  Report Type: 
  Country: None (occurrence: None)
  Receive Date: 20080922
  Receipt Date: 20080904
  Transmission Date: 20090109
  Serious: Yes (Hospitalization)
  Sender: FDA-Public Use
  Company Number: 2008002404

PATIENT
  Age: 69 Year
  Sex: Female

DRUGS (10)
  1. MACUGEN [Suspect]
     Indication: MACULAR DEGENERATION
     Dosage: (0.3 MG, Q12W), INTRA-VITREAL
     Dates: start: 20061103
  2. INDAPAMIDE [Concomitant]
  3. BISOPROLOL FUMARATE [Concomitant]
  4. AMLODIPINE (AMLODIPINE) [Concomitant]
  5. CAPTOPRIL [Concomitant]
  6. ALPRAZOLAM [Concomitant]
  7. POTASSIUM (POTASSIUM) [Concomitant]
  8. VITAMINS WITH MINERALS (VITAMINS WITH MINERALS) [Concomitant]
  9. SPIRONOLACTONE [Concomitant]
  10. GLUCOSAMINE (GLUCOSAMINE) [Concomitant]

REACTIONS (1)
  - ATRIAL FIBRILLATION [None]
